FAERS Safety Report 10368674 (Version 1)
Quarter: 2014Q3

REPORT INFORMATION
  Report Type: Report from Study
  Country: US (occurrence: US)
  Receive Date: 20140807
  Receipt Date: 20140807
  Transmission Date: 20150326
  Serious: Yes (Other)
  Sender: FDA-Public Use
  Company Number: US-GILEAD-2014-0110900

PATIENT
  Age: 61 Year
  Sex: Female

DRUGS (1)
  1. TENOFOVIR DISOPROXIL FUMARATE [Suspect]
     Active Substance: TENOFOVIR DISOPROXIL FUMARATE
     Indication: HEPATITIS B
     Dosage: 300 MG, UNK
     Route: 065

REACTIONS (5)
  - Non-alcoholic steatohepatitis [Unknown]
  - Constipation [Unknown]
  - Blood cholesterol increased [Unknown]
  - Hypertension [Unknown]
  - Gastrooesophageal reflux disease [Unknown]
